FAERS Safety Report 5495018-4 (Version None)
Quarter: 2007Q4

REPORT INFORMATION
  Report Type: 
  Country: None (occurrence: None)
  Receive Date: 20071024
  Receipt Date: 20071022
  Transmission Date: 20080405
  Serious: Yes (Hospitalization)
  Sender: FDA-Public Use
  Company Number: GB-WYE-G00506007

PATIENT
  Age: 61 Year
  Sex: Female
  Weight: 100 kg

DRUGS (2)
  1. TAZOCIN [Suspect]
     Indication: BLOOD CULTURE POSITIVE
     Dosage: 2.25G, FREQUENCY NOT STATED
     Route: 042
     Dates: start: 20070919, end: 20070923
  2. ASPIRIN [Concomitant]
     Indication: ANTIPLATELET THERAPY
     Dosage: 75MG, FREQUENCY NOT STATED
     Route: 048

REACTIONS (2)
  - RENAL FAILURE ACUTE [None]
  - RENAL TUBULAR NECROSIS [None]
